FAERS Safety Report 9752138 (Version 1)
Quarter: 2013Q4

REPORT INFORMATION
  Report Type: Spontaneous
  Country: US (occurrence: None)
  Receive Date: 20131212
  Receipt Date: 20131212
  Transmission Date: 20140711
  Serious: Yes (Death)
  Sender: FDA-Public Use
  Company Number: None

PATIENT
  Age: 73 Year
  Sex: Male

DRUGS (1)
  1. XTANDI 40 MG [Suspect]
     Indication: PROSTATE CANCER
     Route: 048
     Dates: start: 20130815, end: 20131107

REACTIONS (1)
  - Death [None]
